FAERS Safety Report 9256971 (Version 2)
Quarter: 2013Q3

REPORT INFORMATION
  Report Type: Spontaneous
  Country: US (occurrence: US)
  Receive Date: 20130426
  Receipt Date: 20130705
  Transmission Date: 20140515
  Serious: Yes (Hospitalization, Disabling, Other)
  Sender: FDA-Public Use
  Company Number: US-ASTRAZENECA-2013SE27664

PATIENT
  Age: 741 Month
  Sex: Male
  Weight: 70.8 kg

DRUGS (24)
  1. NEXIUM [Suspect]
     Route: 048
  2. NEXIUM [Suspect]
     Route: 048
     Dates: start: 20060221
  3. NEXIUM [Suspect]
     Route: 048
     Dates: start: 20060520
  4. ZANTAC [Concomitant]
     Route: 048
     Dates: start: 20080930
  5. TUMS [Concomitant]
  6. GEODON [Concomitant]
     Indication: SCHIZOPHRENIA
     Dates: start: 20091019
  7. GEODON [Concomitant]
     Indication: SCHIZOPHRENIA
     Dates: start: 20100623
  8. LATUDA [Concomitant]
     Indication: SCHIZOPHRENIA
  9. TRAZODONE [Concomitant]
     Indication: SLEEP DISORDER
  10. LAMICTAL [Concomitant]
  11. PRILOSEC [Concomitant]
     Indication: GASTROOESOPHAGEAL REFLUX DISEASE
  12. ZYRTEC [Concomitant]
     Indication: NASAL DISORDER
  13. NAPROXINE [Concomitant]
     Indication: PAIN
  14. ASPIRIN [Concomitant]
     Indication: PROPHYLAXIS
  15. ZYPREXA [Concomitant]
     Route: 048
  16. CHRONDROITIN SULFATE/ GLUCOSAMINE/ MSM [Concomitant]
     Indication: SPINAL OSTEOARTHRITIS
  17. CLARITIN [Concomitant]
     Indication: MULTIPLE ALLERGIES
  18. NEURONTIN [Concomitant]
     Route: 048
     Dates: start: 20060125
  19. PROTONIX [Concomitant]
     Dates: start: 20060718
  20. CLONAZEPAM [Concomitant]
     Dates: start: 20090917
  21. ALENDRONATE [Concomitant]
     Dates: start: 20100824
  22. ATIVAN [Concomitant]
     Indication: NERVOUSNESS
     Dates: start: 20100920
  23. ZOCOR [Concomitant]
     Indication: BLOOD CHOLESTEROL ABNORMAL
     Dates: start: 20101018
  24. VISTARIL [Concomitant]
     Indication: NERVOUSNESS
     Dates: start: 20060123

REACTIONS (11)
  - Mental disorder [Unknown]
  - Fall [Unknown]
  - Physical disability [Unknown]
  - Gastrooesophageal reflux disease [Unknown]
  - Osteoporosis [Unknown]
  - Bone density decreased [Unknown]
  - Wrist fracture [Unknown]
  - Bone disorder [Unknown]
  - Depression [Unknown]
  - Back pain [Unknown]
  - Pain [Unknown]
